FAERS Safety Report 9455230 (Version 1)
Quarter: 2013Q3

REPORT INFORMATION
  Report Type: Spontaneous
  Country: US (occurrence: US)
  Receive Date: 20130813
  Receipt Date: 20130813
  Transmission Date: 20140515
  Serious: No
  Sender: FDA-Public Use
  Company Number: US-009507513-1308USA004906

PATIENT
  Age: 56 Year
  Sex: Female

DRUGS (17)
  1. SAPHRIS [Suspect]
     Indication: BIPOLAR DISORDER
     Dosage: 20 MG, QD; 20 MG, RAPID DISSOLVE TABLET
     Route: 060
     Dates: start: 201307, end: 20130728
  2. LAMICTAL [Suspect]
  3. LOVAZA [Concomitant]
  4. VYVANSE [Concomitant]
  5. METFORMIN [Concomitant]
  6. PRINIVIL [Concomitant]
  7. LYRICA [Concomitant]
  8. LACTULOSE [Concomitant]
  9. NEXIUM [Concomitant]
  10. LEVOTHYROXINE SODIUM [Concomitant]
  11. LIPITOR [Concomitant]
  12. DUONEB [Concomitant]
  13. VITAMIN D (UNSPECIFIED) [Concomitant]
  14. COMBIVENT [Concomitant]
  15. ADVAIR [Concomitant]
  16. SPIRIVA [Concomitant]
  17. CETIRIZINE HYDROCHLORIDE [Concomitant]

REACTIONS (2)
  - Rash pruritic [Unknown]
  - Rash [Unknown]
